FAERS Safety Report 16826604 (Version 5)
Quarter: 2020Q1

REPORT INFORMATION
  Report Type: Report from Study
  Country: US (occurrence: US)
  Receive Date: 20190919
  Receipt Date: 20200224
  Transmission Date: 20200409
  Serious: Yes (Death, Hospitalization)
  Sender: FDA-Public Use
  Company Number: PHEH2019US038343

PATIENT
  Age: 81 Year
  Sex: Male
  Weight: 72.56 kg

DRUGS (2)
  1. TREPROSTINIL. [Suspect]
     Active Substance: TREPROSTINIL
     Dosage: 84 NG/KG/MIN
     Route: 042
     Dates: start: 20190905
  2. TREPROSTINIL. [Suspect]
     Active Substance: TREPROSTINIL
     Indication: PULMONARY ARTERIAL HYPERTENSION
     Dosage: 78 NG/KG/MIN, CONTINUOUS
     Route: 042
     Dates: start: 20190509

REACTIONS (5)
  - Death [Fatal]
  - Gastrointestinal haemorrhage [Unknown]
  - Pulmonary arterial hypertension [Unknown]
  - Condition aggravated [Unknown]
  - Fluid overload [Unknown]

NARRATIVE: CASE EVENT DATE: 20191129
